FAERS Safety Report 5036506-4 (Version None)
Quarter: 2006Q2

REPORT INFORMATION
  Report Type: 
  Country: None (occurrence: None)
  Receive Date: 20060623
  Receipt Date: 20060605
  Transmission Date: 20061013
  Serious: Yes (Hospitalization)
  Sender: FDA-Public Use
  Company Number: IN200606001727

PATIENT
  Age: 55 Year
  Sex: Female

DRUGS (2)
  1. HUMULIN R [Suspect]
     Indication: DIABETES MELLITUS
     Dosage: SEE IMAGE
     Route: 042
     Dates: start: 20060601, end: 20060601
  2. HUMULIN R [Suspect]
     Indication: DIABETES MELLITUS
     Dosage: SEE IMAGE
     Route: 042
     Dates: start: 20060601

REACTIONS (1)
  - DIABETES MELLITUS INADEQUATE CONTROL [None]
